FAERS Safety Report 6042638-4 (Version None)
Quarter: 2009Q1

REPORT INFORMATION
  Report Type: 
  Country: None (occurrence: None)
  Receive Date: 20090119
  Receipt Date: 20090106
  Transmission Date: 20090719
  Serious: Yes (Hospitalization, Other)
  Sender: FDA-Public Use
  Company Number: PHHY2008MX13993

PATIENT
  Age: 26 Year
  Sex: Male

DRUGS (1)
  1. TRILEPTAL [Suspect]
     Indication: EPILEPSY
     Dosage: 3 TABLETS (300 MG) PER DAY
     Route: 048
     Dates: start: 20070101

REACTIONS (5)
  - ABDOMINAL PAIN [None]
  - APPENDICITIS [None]
  - GASTROINTESTINAL NECROSIS [None]
  - ILEOSTOMY [None]
  - INFECTION [None]
